FAERS Safety Report 9068470 (Version 1)
Quarter: 2013Q1

REPORT INFORMATION
  Report Type: Spontaneous
  Country: US (occurrence: US)
  Receive Date: 20130206
  Receipt Date: 20130206
  Transmission Date: 20140127
  Serious: Yes (Hospitalization)
  Sender: FDA-Public Use
  Company Number: US-ELI_LILLY_AND_COMPANY-US201301010048

PATIENT
  Age: 47 Year
  Sex: Male

DRUGS (2)
  1. CIALIS [Suspect]
     Indication: BENIGN PROSTATIC HYPERPLASIA
     Dosage: 5 MG, QD
     Dates: start: 201301, end: 20130128
  2. ALCOHOL [Concomitant]

REACTIONS (1)
  - Cellulitis orbital [Unknown]
